FAERS Safety Report 10724311 (Version 2)
Quarter: 2015Q1

REPORT INFORMATION
  Report Type: Spontaneous
  Country: CN (occurrence: CN)
  Receive Date: 20150120
  Receipt Date: 20150122
  Transmission Date: 20150721
  Serious: Yes (Hospitalization, Other)
  Sender: FDA-Public Use
  Company Number: CN-BAYER-2015-006085

PATIENT
  Sex: Female

DRUGS (1)
  1. YASMIN [Suspect]
     Active Substance: DROSPIRENONE\ETHINYL ESTRADIOL
     Dosage: UNK
     Route: 048
     Dates: start: 2014, end: 201412

REACTIONS (6)
  - Venoocclusive liver disease [None]
  - Hepatic vascular thrombosis [None]
  - Splenomegaly [None]
  - Ascites [None]
  - Hepatomegaly [None]
  - Platelet count increased [None]
